FAERS Safety Report 8469459-7 (Version None)
Quarter: 2012Q2

REPORT INFORMATION
  Report Type: 
  Country: None (occurrence: None)
  Receive Date: 20120626
  Receipt Date: 20120617
  Transmission Date: 20120825
  Serious: Yes (Death, Hospitalization)
  Sender: FDA-Public Use
  Company Number: PH-BAXTER-2012BAX009501

PATIENT
  Sex: Female

DRUGS (2)
  1. DIANEAL PD-2 W/ DEXTROSE 4.25% [Suspect]
     Route: 033
  2. DIANEAL PD-2 W/ DEXTROSE 1.5% [Suspect]
     Route: 033

REACTIONS (2)
  - DYSPNOEA [None]
  - DEATH [None]
